FAERS Safety Report 8798666 (Version 5)
Quarter: 2013Q3

REPORT INFORMATION
  Report Type: Spontaneous
  Country: US (occurrence: US)
  Receive Date: 20120920
  Receipt Date: 20130903
  Transmission Date: 20140515
  Serious: Yes (Other)
  Sender: FDA-Public Use
  Company Number: US-PFIZER INC-2012231823

PATIENT
  Age: 53 Year
  Sex: Male
  Weight: 83.9 kg

DRUGS (7)
  1. LYRICA [Suspect]
     Indication: FIBROMYALGIA
     Dosage: 75 MG, 1X/DAY
     Route: 048
  2. LYRICA [Suspect]
     Indication: INTERVERTEBRAL DISC PROTRUSION
     Dosage: 150 MG, 1X/DAY
     Route: 048
  3. MOTRIN [Suspect]
     Indication: BACK PAIN
     Dosage: 800 MG, AS NEEDED
     Route: 048
  4. ATENOLOL [Concomitant]
     Indication: MIGRAINE
     Dosage: UNK
  5. MAXALT [Concomitant]
     Indication: MIGRAINE
     Dosage: 10 MG, UNK
  6. BABY ASPIRIN [Concomitant]
     Dosage: UNK, 1X/DAY
  7. IBUPROFEN [Concomitant]
     Indication: PAIN
     Dosage: 800 MG, AS NEEDED

REACTIONS (15)
  - Expired drug administered [Unknown]
  - Drug dose omission [Unknown]
  - Pain [Not Recovered/Not Resolved]
  - Arthralgia [Not Recovered/Not Resolved]
  - Back pain [Not Recovered/Not Resolved]
  - Pain in extremity [Not Recovered/Not Resolved]
  - Neck pain [Not Recovered/Not Resolved]
  - Activities of daily living impaired [Not Recovered/Not Resolved]
  - Rib fracture [Unknown]
  - Fall [Unknown]
  - Musculoskeletal pain [Not Recovered/Not Resolved]
  - Feeling abnormal [Unknown]
  - Insomnia [Not Recovered/Not Resolved]
  - Abdominal discomfort [Unknown]
  - Pain in extremity [Not Recovered/Not Resolved]
